FAERS Safety Report 9761658 (Version 2)
Quarter: 2013Q4

REPORT INFORMATION
  Report Type: Spontaneous
  Country: DK (occurrence: DK)
  Receive Date: 20131216
  Receipt Date: 20131216
  Transmission Date: 20140711
  Serious: Yes (Disabling)
  Sender: FDA-Public Use
  Company Number: DK-GE HEALTHCARE MEDICAL DIAGNOSTICS-OSCN-NO-1002S-0054

PATIENT
  Age: 58 Year
  Sex: Male
  Weight: 69.5 kg

DRUGS (6)
  1. GADOLINIUM (UNSPECIFIED) [Suspect]
     Indication: TRANSPLANT EVALUATION
     Route: 042
     Dates: start: 20030311, end: 20030311
  2. RAMIPRIL (TRIATEC) [Concomitant]
  3. ALFACALCIDOL (ETALPHA) [Concomitant]
  4. SOTALOL [Concomitant]
  5. POLYSTYRENE SULFONATE (RESONIUM) [Concomitant]
  6. CALCIUM CARBONATE [Concomitant]

REACTIONS (1)
  - Nephrogenic systemic fibrosis [Not Recovered/Not Resolved]
